FAERS Safety Report 26198715 (Version 1)
Quarter: 2025Q4

REPORT INFORMATION
  Report Type: Spontaneous
  Country: US (occurrence: US)
  Receive Date: 20251225
  Receipt Date: 20251225
  Transmission Date: 20260118
  Serious: Yes (Other)
  Sender: CADILA
  Company Number: US-CPL-006037

PATIENT
  Age: 64 Year
  Sex: Male

DRUGS (15)
  1. ROSUVASTATIN [Suspect]
     Active Substance: ROSUVASTATIN
     Indication: Low density lipoprotein decreased
     Dosage: 40 MG/D
  2. VITAMIN C [Concomitant]
     Active Substance: ASCORBIC ACID
     Dosage: 1,000 MG/D
  3. CARVEDILOL [Concomitant]
     Active Substance: CARVEDILOL
     Dosage: 3.125 MG TWICE DAILY
  4. DIAZEPAM [Concomitant]
     Active Substance: DIAZEPAM
     Dosage: 5 MG AS NEEDED
  5. BUDESONIDE [Concomitant]
     Active Substance: BUDESONIDE
     Dosage: 2 MG TWICE DAILY
  6. FISH OIL [Concomitant]
     Active Substance: FISH OIL
     Dosage: 1?G DAILY
  7. FLUTICASONE [Concomitant]
     Active Substance: FLUTICASONE
     Dosage: 220 MCG TWICE A DAY
  8. FLUTICASONE [Concomitant]
     Active Substance: FLUTICASONE
     Dosage: NASAL SPRAY ONE SPRAY EACH NOSTRIL DAILY,
  9. GABAPENTIN [Concomitant]
     Active Substance: GABAPENTIN
     Dosage: 100 MG THREE TIMES DAILY
  10. VITAMINS [Concomitant]
     Active Substance: VITAMINS
     Dosage: ONE TAB DAILY
  11. OLOPATADINE [Concomitant]
     Active Substance: OLOPATADINE
     Dosage: OPHTHALMIC SOLUTION 0.1%?TWICE A DAY
  12. PANTOPRAZOLE [Concomitant]
     Active Substance: PANTOPRAZOLE
     Dosage: 20 MG/D
  13. RIMEGEPANT [Concomitant]
     Active Substance: RIMEGEPANT
     Dosage: 75 MG EVERY OTHER DAY
  14. ZINC SULFATE [Concomitant]
     Active Substance: ZINC SULFATE
     Dosage: 50 MG/D
  15. ROSUVASTATIN [Suspect]
     Active Substance: ROSUVASTATIN
     Indication: Low density lipoprotein decreased
     Dosage: 40 MG/D

REACTIONS (3)
  - Acute kidney injury [Recovered/Resolved]
  - Nephropathy toxic [Unknown]
  - Renal tubular necrosis [Recovered/Resolved]
